FAERS Safety Report 4786013-9 (Version None)
Quarter: 2005Q3

REPORT INFORMATION
  Report Type: 
  Country: None (occurrence: None)
  Receive Date: 20050930
  Receipt Date: 20050922
  Transmission Date: 20060218
  Serious: Yes (Death, Other)
  Sender: FDA-Public Use
  Company Number: 200510807BVD

PATIENT
  Age: 52 Year
  Sex: Male
  Weight: 89 kg

DRUGS (22)
  1. AVELOX [Suspect]
     Indication: PNEUMONIA
     Dosage: 400 MG, TOTAL DAILY
     Dates: start: 20050819, end: 20050822
  2. 10% SOLUTION OF AMINO ACIDS [Concomitant]
  3. 20% GLUCOSE SOLUTION [Concomitant]
  4. TPN [Concomitant]
  5. SALVILIPID [Concomitant]
  6. MOTILIUM [Concomitant]
  7. PERFALGAN [Concomitant]
  8. DIFLUCAN [Concomitant]
  9. HEPARIN [Concomitant]
  10. NOVALGIN [Concomitant]
  11. ACTRAPID [Concomitant]
  12. PRIMAXIN [Concomitant]
  13. HUMATIN [Concomitant]
  14. DIPIDOLOR [Concomitant]
  15. PARACEFAN [Concomitant]
  16. PANTOZOL [Concomitant]
  17. SANDOSTATIN [Concomitant]
  18. INFECTOFOS [Concomitant]
  19. AMINOFUSIN HEPAR [Concomitant]
  20. SUFENTA MITE [Concomitant]
  21. DORMICUM [Concomitant]
  22. HEPA-MERZ [Concomitant]

REACTIONS (21)
  - ACQUIRED DIAPHRAGMATIC EVENTRATION [None]
  - AMMONIA INCREASED [None]
  - ANTICHOLINERGIC SYNDROME [None]
  - ATELECTASIS [None]
  - BODY TEMPERATURE INCREASED [None]
  - BRAIN OEDEMA [None]
  - CANDIDA SEPSIS [None]
  - CATHETER RELATED INFECTION [None]
  - CIRCULATORY COLLAPSE [None]
  - DISTURBANCE IN ATTENTION [None]
  - GASTROINTESTINAL HAEMORRHAGE [None]
  - HAEMOGLOBIN DECREASED [None]
  - HYPOVOLAEMIA [None]
  - INFLAMMATION [None]
  - MULTI-ORGAN FAILURE [None]
  - PANCREATIC ABSCESS [None]
  - PANCREATIC CYST [None]
  - PANCREATIC DISORDER [None]
  - PANCREATIC NECROSIS [None]
  - PANCREATIC NEOPLASM [None]
  - PNEUMONIA [None]
